FAERS Safety Report 10698112 (Version 4)
Quarter: 2019Q2

REPORT INFORMATION
  Report Type: Spontaneous
  Country: US (occurrence: US)
  Receive Date: 20150108
  Receipt Date: 20190513
  Transmission Date: 20190711
  Serious: Yes (Hospitalization, Disabling, Other)
  Sender: FDA-Public Use
  Company Number: US-PFIZER INC-2015005247

PATIENT
  Age: 68 Year
  Sex: Female
  Weight: 102 kg

DRUGS (8)
  1. TOVIAZ [Suspect]
     Active Substance: FESOTERODINE FUMARATE
     Indication: BLADDER DISORDER
     Dosage: 8 MG, 1X/DAY
     Route: 048
  2. LISINOPRIL. [Concomitant]
     Active Substance: LISINOPRIL
     Indication: BLOOD PRESSURE MEASUREMENT
     Dosage: 12.5 MG, 1X/DAY
     Route: 048
  3. PREDNISONE. [Concomitant]
     Active Substance: PREDNISONE
     Indication: RHEUMATOID ARTHRITIS
     Dosage: 10 MG, 1X/DAY
     Route: 048
  4. LYRICA [Suspect]
     Active Substance: PREGABALIN
     Indication: RHEUMATOID ARTHRITIS
     Dosage: 150 MG, 1X/DAY
     Route: 048
  5. CELEBREX [Suspect]
     Active Substance: CELECOXIB
     Indication: RHEUMATOID ARTHRITIS
     Dosage: 1 DF, UNK
     Route: 048
     Dates: end: 20151122
  6. HYDROCODONE [Concomitant]
     Active Substance: HYDROCODONE
     Indication: PAIN
     Dosage: 7.5 MG, AS NEEDED
     Route: 048
  7. FOLIC ACID. [Concomitant]
     Active Substance: FOLIC ACID
     Dosage: 1 MG, DAILY
     Route: 048
  8. METHOTREXATE. [Concomitant]
     Active Substance: METHOTREXATE
     Indication: RHEUMATOID ARTHRITIS
     Dosage: 160 MG, WEEKLY

REACTIONS (17)
  - Diarrhoea [Recovered/Resolved]
  - Dysuria [Unknown]
  - Deep vein thrombosis [Not Recovered/Not Resolved]
  - Pneumonia [Unknown]
  - Foot fracture [Recovered/Resolved]
  - Influenza [Unknown]
  - Ocular vascular disorder [Unknown]
  - Peripheral swelling [Recovering/Resolving]
  - Contusion [Unknown]
  - Pulmonary thrombosis [Not Recovered/Not Resolved]
  - Dyspnoea [Recovered/Resolved]
  - Bladder disorder [Unknown]
  - Pain [Unknown]
  - Fall [Recovered/Resolved with Sequelae]
  - Eye contusion [Unknown]
  - Dehydration [Unknown]
  - Pruritus [Unknown]

NARRATIVE: CASE EVENT DATE: 20151017
